FAERS Safety Report 24380492 (Version 2)
Quarter: 2024Q4

REPORT INFORMATION
  Report Type: Spontaneous
  Country: US (occurrence: US)
  Receive Date: 20240930
  Receipt Date: 20241204
  Transmission Date: 20250115
  Serious: No
  Sender: SANOFI AVENTIS
  Company Number: US-SA-2024SA275260

PATIENT
  Age: 11 Month
  Sex: Male

DRUGS (3)
  1. DUPIXENT [Suspect]
     Active Substance: DUPILUMAB
     Indication: Eczema
     Dosage: 200 MG, 1X
     Route: 058
     Dates: start: 20240723, end: 20240723
  2. DUPIXENT [Suspect]
     Active Substance: DUPILUMAB
     Dosage: 200 MG, 1X
     Route: 058
     Dates: start: 202408
  3. HYDROXYZINE [Concomitant]
     Active Substance: HYDROXYZINE HYDROCHLORIDE
     Dosage: UNK

REACTIONS (6)
  - Injection site swelling [Recovered/Resolved]
  - Eczema [Unknown]
  - Pruritus [Recovering/Resolving]
  - Dry skin [Unknown]
  - Erythema [Recovering/Resolving]
  - Therapeutic response shortened [Unknown]

NARRATIVE: CASE EVENT DATE: 20240101
